FAERS Safety Report 6962574-6 (Version None)
Quarter: 2010Q3

REPORT INFORMATION
  Report Type: 
  Country: None (occurrence: None)
  Receive Date: 20100831
  Receipt Date: 20100816
  Transmission Date: 20110219
  Serious: Yes (Other)
  Sender: FDA-Public Use
  Company Number: AUR-APL-2010-02120

PATIENT
  Age: 61 Year
  Sex: Female
  Weight: 75 kg

DRUGS (2)
  1. METFORMIN FILM-COATED TABLET [Suspect]
     Indication: TYPE 2 DIABETES MELLITUS
     Dosage: BID, ORAL
     Route: 048
  2. GLIPIZIDE [Suspect]
     Indication: TYPE 2 DIABETES MELLITUS
     Dosage: BID, ORAL
     Route: 048

REACTIONS (1)
  - BLOOD GLUCOSE INCREASED [None]
